FAERS Safety Report 4730342-1 (Version None)
Quarter: 2005Q3

REPORT INFORMATION
  Report Type: 
  Country: None (occurrence: None)
  Receive Date: 20050729
  Receipt Date: 20050729
  Transmission Date: 20060218
  Serious: Yes (Death, Hospitalization)
  Sender: FDA-Public Use
  Company Number: None

PATIENT
  Age: 52 Year
  Sex: Female

DRUGS (2)
  1. XELODA [Suspect]
     Indication: BREAST CANCER
     Dosage: XELODA 500MG 4 PO QD ORAL
     Route: 048
     Dates: start: 20050520, end: 20050708
  2. TAXOTERE [Suspect]
     Indication: BREAST CANCER
     Dosage: TAXOTERE 30MG/M2 D1 D8 INTRAVENOUS
     Route: 042
     Dates: start: 20050520, end: 20050708

REACTIONS (2)
  - PNEUMONIA [None]
  - RESPIRATORY FAILURE [None]
